FAERS Safety Report 21906804 (Version 2)
Quarter: 2023Q1

REPORT INFORMATION
  Report Type: Spontaneous
  Country: DE (occurrence: DE)
  Receive Date: 20230125
  Receipt Date: 20230220
  Transmission Date: 20230418
  Serious: Yes (Other)
  Sender: FDA-Public Use
  Company Number: DE-TEVA-2023-DE-2848625

PATIENT
  Age: 22 Year
  Sex: Female

DRUGS (4)
  1. PREDNISOLONE [Suspect]
     Active Substance: PREDNISOLONE
     Indication: Melkersson-Rosenthal syndrome
     Dosage: 50 MILLIGRAM DAILY; DECREASING DOSAGE OVER A PERIOD OF 6 WEEKS , ONCE A DAY
     Route: 065
  2. METHOTREXATE [Suspect]
     Active Substance: METHOTREXATE
     Indication: Melkersson-Rosenthal syndrome
     Dosage: 15MG ONCE A WEEK
     Route: 065
     Dates: start: 202009
  3. FOLIC ACID [Concomitant]
     Active Substance: FOLIC ACID
     Indication: Melkersson-Rosenthal syndrome
     Dosage: 5 MG
     Route: 065
     Dates: start: 202009
  4. TRIAMCINOLONE [Concomitant]
     Active Substance: TRIAMCINOLONE
     Indication: Melkersson-Rosenthal syndrome
     Dosage: 40 MG , INTRALESIONAL INJECTION TO THE EPIGLOTTIS AND RIGHT ARYTHNOID-REGION
     Route: 026

REACTIONS (2)
  - Therapy non-responder [Unknown]
  - Gastrointestinal disorder [Unknown]
